FAERS Safety Report 5129180-X (Version None)
Quarter: 2006Q4

REPORT INFORMATION
  Report Type: 
  Country: None (occurrence: None)
  Receive Date: 20061018
  Receipt Date: 20061005
  Transmission Date: 20070319
  Serious: Yes (Other)
  Sender: FDA-Public Use
  Company Number: PHBS2006JP15727

PATIENT

DRUGS (2)
  1. LAMISIL [Suspect]
     Route: 048
  2. ANTIBIOTICS [Suspect]

REACTIONS (4)
  - FACIAL PALSY [None]
  - LIVER DISORDER [None]
  - NASOPHARYNGITIS [None]
  - RASH [None]
